FAERS Safety Report 10902971 (Version 1)
Quarter: 2015Q1

REPORT INFORMATION
  Report Type: Spontaneous
  Country: DK (occurrence: GB)
  Receive Date: 20150310
  Receipt Date: 20150310
  Transmission Date: 20150721
  Serious: Yes (Other)
  Sender: FDA-Public Use
  Company Number: GB-FRI-1000075129

PATIENT
  Age: 40 Year
  Sex: Female
  Weight: 66.22 kg

DRUGS (2)
  1. ESCITALOPRAM [Suspect]
     Active Substance: ESCITALOPRAM OXALATE
     Indication: ANXIETY
     Dosage: 10 MG DAILY
     Route: 048
     Dates: start: 20140926, end: 20150129
  2. ESCITALOPRAM [Suspect]
     Active Substance: ESCITALOPRAM OXALATE
     Indication: ANXIETY
     Dosage: 10 MG DAILY
     Route: 048
     Dates: start: 201307, end: 201409

REACTIONS (4)
  - Product substitution issue [Unknown]
  - Anxiety [Recovering/Resolving]
  - Mental disorder [Unknown]
  - Depressed mood [Recovering/Resolving]

NARRATIVE: CASE EVENT DATE: 20141001
